FAERS Safety Report 7359145 (Version 2)
Quarter: 2013Q1

REPORT INFORMATION
  Report Type: Spontaneous
  Country: GB (occurrence: None)
  Receive Date: 20100401
  Receipt Date: 20130319
  Transmission Date: 20140127
  Serious: Yes (Death, Hospitalization)
  Sender: FDA-Public Use
  Company Number: 546957

PATIENT
  Age: 74 Year
  Sex: Male

DRUGS (2)
  1. VINORELBINE TARTRATE [Suspect]
     Indication: LUNG NEOPLASM MALIGNANT
     Dosage: 15 MG, INTAVENOUS
     Route: 042
     Dates: start: 20090518, end: 20090717
  2. CISPLATIN [Suspect]
     Indication: LUNG NEOPLASM MALIGNANT
     Dosage: 50 MG, INTRAVENOUS
     Route: 042
     Dates: start: 20090518, end: 20090706

REACTIONS (3)
  - Interstitial lung disease [None]
  - Radiation pneumonitis [None]
  - Bacterial infection [None]
